FAERS Safety Report 25244741 (Version 1)
Quarter: 2025Q2

REPORT INFORMATION
  Report Type: Spontaneous
  Country: CN (occurrence: CN)
  Receive Date: 20250428
  Receipt Date: 20250428
  Transmission Date: 20250717
  Serious: Yes (Other)
  Sender: BAYER HEALTHCARE PHARMACEUTICALS INC.
  Company Number: CN-BAYER-2025A055777

PATIENT
  Age: 18 Year
  Sex: Male

DRUGS (12)
  1. MOXIFLOXACIN [Suspect]
     Active Substance: MOXIFLOXACIN
     Indication: Pneumonia adenoviral
     Dosage: 0.4 G, QD
     Dates: start: 20240305, end: 20240312
  2. MOXIFLOXACIN [Suspect]
     Active Substance: MOXIFLOXACIN
     Indication: Acute respiratory distress syndrome
  3. GANCICLOVIR [Suspect]
     Active Substance: GANCICLOVIR
     Indication: Anti-infective therapy
     Dosage: 0.4 G, BID
     Dates: start: 20240305, end: 20240307
  4. CIDOFOVIR [Suspect]
     Active Substance: CIDOFOVIR
     Indication: Antiviral treatment
     Dosage: 5 MG/KG, OW
     Dates: start: 20240307, end: 20240307
  5. CIDOFOVIR [Suspect]
     Active Substance: CIDOFOVIR
     Indication: Antiviral treatment
     Dosage: 5 MG/KG, OW
     Dates: start: 20240313, end: 20240313
  6. OXYGEN [Concomitant]
     Active Substance: OXYGEN
     Indication: Respiratory distress
     Route: 055
     Dates: start: 20240305
  7. METHYLPREDNISOLONE SODIUM SUCCINATE [Concomitant]
     Active Substance: METHYLPREDNISOLONE SODIUM SUCCINATE
     Indication: Antiinflammatory therapy
     Dosage: 80 MG, QD
     Dates: start: 20240305, end: 20240306
  8. METHYLPREDNISOLONE SODIUM SUCCINATE [Concomitant]
     Active Substance: METHYLPREDNISOLONE SODIUM SUCCINATE
     Indication: Antiinflammatory therapy
     Dosage: 3 MG/KG, QD, FOR THREE CONSECUTIVE DAYS OF PULSE THERAPY, AFTER WHICH THE DOSE WAS GRADUALLY REDUCED
     Dates: start: 20240307, end: 20240309
  9. METHYLPREDNISOLONE SODIUM SUCCINATE [Concomitant]
     Active Substance: METHYLPREDNISOLONE SODIUM SUCCINATE
     Indication: Antiinflammatory therapy
     Dates: start: 20240310
  10. HUMAN IMMUNOGLOBULIN G [Concomitant]
     Active Substance: HUMAN IMMUNOGLOBULIN G
     Indication: Immunomodulatory therapy
     Dosage: 20 G, QD
     Route: 042
     Dates: start: 20240305
  11. PROBENECID [Concomitant]
     Active Substance: PROBENECID
     Indication: Renal disorder prophylaxis
     Dates: start: 20240307, end: 20240307
  12. PROBENECID [Concomitant]
     Active Substance: PROBENECID
     Indication: Renal disorder prophylaxis
     Dates: start: 20240313, end: 20240313

REACTIONS (3)
  - Nephropathy toxic [None]
  - Product prescribing issue [None]
  - Drug ineffective for unapproved indication [None]

NARRATIVE: CASE EVENT DATE: 20240301
